FAERS Safety Report 15624777 (Version 3)
Quarter: 2018Q4

REPORT INFORMATION
  Report Type: Spontaneous
  Country: ES (occurrence: ES)
  Receive Date: 20181116
  Receipt Date: 20181120
  Transmission Date: 20190205
  Serious: Yes (Other)
  Sender: FDA-Public Use
  Company Number: PHHY2018ES153042

PATIENT
  Age: 63 Year
  Sex: Male

DRUGS (2)
  1. KYPROLIS [Suspect]
     Active Substance: CARFILZOMIB
     Indication: PRODUCT USED FOR UNKNOWN INDICATION
     Dosage: UNK
     Route: 065
  2. DEXAMETHASONE. [Suspect]
     Active Substance: DEXAMETHASONE
     Indication: PRODUCT USED FOR UNKNOWN INDICATION
     Dosage: UNK
     Route: 065

REACTIONS (9)
  - Cardiac failure [Recovered/Resolved]
  - Hyperkalaemia [Unknown]
  - Hyperglycaemia [Unknown]
  - Oedema [Recovering/Resolving]
  - Diarrhoea [Recovering/Resolving]
  - Respiratory tract infection [Unknown]
  - Back pain [Recovering/Resolving]
  - Cough [Unknown]
  - Hypertensive crisis [Recovering/Resolving]
